FAERS Safety Report 7962416-6 (Version None)
Quarter: 2011Q4

REPORT INFORMATION
  Report Type: 
  Country: None (occurrence: None)
  Receive Date: 20111207
  Receipt Date: 20111129
  Transmission Date: 20120403
  Serious: No
  Sender: FDA-Public Use
  Company Number: US-B.I. PHARMACEUTICALS,INC./RIDGEFIELD-2011-BP-27048BP

PATIENT
  Sex: Male

DRUGS (9)
  1. CRESTOR [Concomitant]
     Indication: BLOOD CHOLESTEROL
  2. PROVIGIL [Concomitant]
  3. XANAX [Concomitant]
  4. AMIODARONE HCL [Concomitant]
     Indication: CARDIAC DISORDER
  5. WELLBUTRIN [Concomitant]
  6. OXYBUTYNIN [Concomitant]
  7. NEXIUM [Concomitant]
     Indication: ABDOMINAL DISCOMFORT
  8. MIRTAZINE [Concomitant]
     Indication: INSOMNIA
  9. PRADAXA [Suspect]
     Indication: ATRIAL FIBRILLATION
     Dosage: 300 MG
     Route: 048

REACTIONS (1)
  - CONDITION AGGRAVATED [None]
